FAERS Safety Report 16731849 (Version 4)
Quarter: 2021Q2

REPORT INFORMATION
  Report Type: Report from Study
  Country: CO (occurrence: CO)
  Receive Date: 20190822
  Receipt Date: 20210622
  Transmission Date: 20210716
  Serious: No
  Sender: FDA-Public Use
  Company Number: CO-JNJFOC-20190822809

PATIENT
  Age: 67 Year
  Sex: Male
  Weight: 70 kg

DRUGS (5)
  1. STELARA [Suspect]
     Active Substance: USTEKINUMAB
     Route: 058
     Dates: start: 20190122, end: 20190122
  2. STELARA [Suspect]
     Active Substance: USTEKINUMAB
     Route: 058
     Dates: start: 20181022, end: 20181022
  3. STELARA [Suspect]
     Active Substance: USTEKINUMAB
     Route: 058
     Dates: start: 20190416, end: 20190709
  4. STELARA [Suspect]
     Active Substance: USTEKINUMAB
     Route: 058
     Dates: start: 20200221
  5. STELARA [Suspect]
     Active Substance: USTEKINUMAB
     Indication: PSORIASIS
     Dosage: THE LAST APPLICATION OF USTEKINUMAB WAS ON 9?JUL?2019, 11?SEP?2020
     Route: 058
     Dates: start: 20180921, end: 20180921

REACTIONS (5)
  - Hepatic steatosis [Recovered/Resolved]
  - Cholelithiasis [Recovered/Resolved]
  - Sinusitis [Recovered/Resolved]
  - Blood bilirubin increased [Recovered/Resolved]
  - Blood creatinine increased [Recovering/Resolving]

NARRATIVE: CASE EVENT DATE: 20190709
